FAERS Safety Report 12540720 (Version 1)
Quarter: 2016Q3

REPORT INFORMATION
  Report Type: Spontaneous
  Country: US (occurrence: US)
  Receive Date: 20160708
  Receipt Date: 20160708
  Transmission Date: 20161109
  Serious: No
  Sender: FDA-Public Use
  Company Number: US-HORIZON-PEN-0309-2016

PATIENT
  Sex: Male

DRUGS (1)
  1. PENNSAID [Suspect]
     Active Substance: DICLOFENAC SODIUM
     Indication: JOINT SWELLING
     Dosage: TWICE PER DAY

REACTIONS (5)
  - Application site pruritus [Unknown]
  - Application site erythema [Unknown]
  - Application site exfoliation [Unknown]
  - Application site rash [Unknown]
  - Off label use [Unknown]
